FAERS Safety Report 6877945-6 (Version None)
Quarter: 2010Q3

REPORT INFORMATION
  Report Type: 
  Country: None (occurrence: None)
  Receive Date: 20100727
  Receipt Date: 20100722
  Transmission Date: 20110219
  Serious: Yes (Death)
  Sender: FDA-Public Use
  Company Number: PHHY2010MX48297

PATIENT
  Age: 80 Year
  Sex: Female

DRUGS (10)
  1. ACLASTA [Suspect]
     Indication: OSTEOPOROSIS
     Dosage: 5 MG PER YEAR
     Dates: start: 20090201
  2. LYRICA [Concomitant]
  3. TAFIROL [Concomitant]
  4. ENALAPRIL MALEATE [Concomitant]
  5. RANITIDINE [Concomitant]
  6. CATAPRESAN [Concomitant]
  7. ADEPSIQUE [Concomitant]
     Dosage: UNK
  8. SENOKOT [Concomitant]
  9. GLUCOPHAGE [Concomitant]
  10. BI-EUGLUCON [Concomitant]
     Dosage: UNK

REACTIONS (1)
  - MYOCARDIAL INFARCTION [None]
